FAERS Safety Report 4608058-1 (Version None)
Quarter: 2005Q2

REPORT INFORMATION
  Report Type: 
  Country: None (occurrence: None)
  Receive Date: 20050303
  Receipt Date: 20041117
  Transmission Date: 20051028
  Serious: No
  Sender: FDA-Public Use
  Company Number: 210135

PATIENT
  Age: 13 Year
  Sex: Male
  Weight: 107.7 kg

DRUGS (8)
  1. XOLAIR [Suspect]
     Indication: ASTHMA
     Dosage: 225 MG, Q2W, SUBCUTANEOUS
     Route: 058
     Dates: start: 20040924, end: 20041028
  2. ADVAIR (FLUTICASONE PROPINATE, SALMETEROL XINAFOATE) [Concomitant]
  3. PREVACID [Concomitant]
  4. SINGULAIR [Concomitant]
  5. FLONASE NASAL SPRAY (FLUTICASONE PROPIONATE) [Concomitant]
  6. ALLEGRA [Concomitant]
  7. ALBUTEROL INHALER (ALBUTEROL SULFATE, ALBUTEROL) [Concomitant]
  8. REGLAN [Concomitant]

REACTIONS (2)
  - HEADACHE [None]
  - VOMITING [None]
